FAERS Safety Report 4750163-3 (Version None)
Quarter: 2005Q3

REPORT INFORMATION
  Report Type: 
  Country: None (occurrence: None)
  Receive Date: 20050819
  Receipt Date: 20050808
  Transmission Date: 20060218
  Serious: Yes (Life-Threatening, Hospitalization, Disabling)
  Sender: FDA-Public Use
  Company Number: 2005112563

PATIENT
  Age: 38 Year
  Sex: Female
  Weight: 79.3795 kg

DRUGS (2)
  1. XANAX [Suspect]
     Indication: NERVOUSNESS
     Dosage: 3 MG (1 MG, 3 IN 1 D)
     Dates: start: 20010101
  2. SEROQUEL [Concomitant]

REACTIONS (3)
  - CARDIAC DISORDER [None]
  - DEPRESSION [None]
  - MYOCARDIAL INFARCTION [None]
